FAERS Safety Report 25345937 (Version 1)
Quarter: 2025Q2

REPORT INFORMATION
  Report Type: Spontaneous
  Country: US (occurrence: US)
  Receive Date: 20250522
  Receipt Date: 20250522
  Transmission Date: 20250716
  Serious: Yes (Hospitalization, Other)
  Sender: EXELA PHARMA SCIENCES
  Company Number: US-EXELAPHARMA-2025EXLA00086

PATIENT
  Age: 62 Year
  Sex: Male

DRUGS (3)
  1. BLOXIVERZ [Suspect]
     Active Substance: NEOSTIGMINE METHYLSULFATE
     Indication: Intestinal pseudo-obstruction
     Route: 042
  2. METHYLNALTREXONE [Concomitant]
     Active Substance: METHYLNALTREXONE
     Indication: Abdominal distension
  3. Laxatives regimen [Concomitant]

REACTIONS (1)
  - Drug ineffective for unapproved indication [Recovered/Resolved]
